FAERS Safety Report 17924946 (Version 2)
Quarter: 2020Q3

REPORT INFORMATION
  Report Type: Spontaneous
  Country: US (occurrence: US)
  Receive Date: 20200622
  Receipt Date: 20200803
  Transmission Date: 20201103
  Serious: Yes (Other)
  Sender: FDA-Public Use
  Company Number: US-NOVOPROD-734206

PATIENT
  Age: 46 Year
  Sex: Female
  Weight: 101 kg

DRUGS (2)
  1. NOVOLOG [Suspect]
     Active Substance: INSULIN ASPART
     Indication: TYPE 2 DIABETES MELLITUS
     Dosage: SLIDING SCALE
     Route: 058
  2. TRESIBA [Suspect]
     Active Substance: INSULIN DEGLUDEC
     Indication: TYPE 2 DIABETES MELLITUS
     Dosage: 32 IU, QD (32 UNITS/NIGHT)
     Route: 058

REACTIONS (3)
  - Product dose omission issue [Unknown]
  - Blood glucose increased [Recovering/Resolving]
  - Memory impairment [Recovering/Resolving]
